FAERS Safety Report 4286607-3 (Version None)
Quarter: 2004Q1

REPORT INFORMATION
  Report Type: 
  Country: None (occurrence: None)
  Receive Date: 20040204
  Receipt Date: 20040202
  Transmission Date: 20041129
  Serious: Yes (Hospitalization)
  Sender: FDA-Public Use
  Company Number: STA-AE-04-MTX-040

PATIENT
  Age: 67 Year
  Sex: Male

DRUGS (3)
  1. LANTAREL (METHOTREXATE) [Suspect]
     Dosage: 10 MG PER WEEK
     Dates: start: 20021101, end: 20030701
  2. ANAKINRA (ANAKINRA) [Suspect]
     Dates: start: 20020701, end: 20021101
  3. ARAVA [Suspect]
     Dosage: 20 MG PER DAY, UNK

REACTIONS (1)
  - PULMONARY TUBERCULOSIS [None]
